FAERS Safety Report 6569240-X (Version None)
Quarter: 2010Q1

REPORT INFORMATION
  Report Type: 
  Country: None (occurrence: None)
  Receive Date: 20100201
  Receipt Date: 20100201
  Transmission Date: 20100710
  Serious: No
  Sender: FDA-Public Use
  Company Number: None

PATIENT
  Age: 40 Year
  Sex: Male
  Weight: 74.8435 kg

DRUGS (1)
  1. DILANTIN [Suspect]
     Indication: OSTEOPOROSIS

REACTIONS (2)
  - MULTIPLE FRACTURES [None]
  - OSTEOPOROSIS [None]
